FAERS Safety Report 16358309 (Version 4)
Quarter: 2019Q3

REPORT INFORMATION
  Report Type: Report from Study
  Country: US (occurrence: US)
  Receive Date: 20190527
  Receipt Date: 20190730
  Transmission Date: 20191004
  Serious: No
  Sender: FDA-Public Use
  Company Number: PHEH2019US022184

PATIENT
  Sex: Female

DRUGS (1)
  1. ENTRESTO [Suspect]
     Active Substance: SACUBITRIL\VALSARTAN
     Indication: CARDIAC FAILURE
     Dosage: UNK UNK, BID
     Route: 048

REACTIONS (8)
  - Back pain [Unknown]
  - Dehydration [Unknown]
  - Decreased activity [Unknown]
  - Fatigue [Unknown]
  - Malaise [Recovering/Resolving]
  - White blood cell count increased [Unknown]
  - Musculoskeletal pain [Unknown]
  - Asthenia [Unknown]
